FAERS Safety Report 11276366 (Version 3)
Quarter: 2015Q4

REPORT INFORMATION
  Report Type: Spontaneous
  Country: US (occurrence: US)
  Receive Date: 20150716
  Receipt Date: 20151016
  Transmission Date: 20160304
  Serious: Yes (Other)
  Sender: FDA-Public Use
  Company Number: US-PFIZER INC-2015231407

PATIENT
  Age: 75 Year
  Sex: Female
  Weight: 47 kg

DRUGS (1)
  1. IBRANCE [Suspect]
     Active Substance: PALBOCICLIB
     Indication: BREAST CANCER
     Dosage: 125 MG, DAY 1-21 Q28 DAYS
     Route: 048
     Dates: start: 20150626

REACTIONS (6)
  - Fatigue [Unknown]
  - Asthenia [Unknown]
  - White blood cell count decreased [Unknown]
  - Decreased appetite [Unknown]
  - Weight decreased [Unknown]
  - Retching [Unknown]

NARRATIVE: CASE EVENT DATE: 20150710
